FAERS Safety Report 5095472-6 (Version None)
Quarter: 2006Q3

REPORT INFORMATION
  Report Type: 
  Country: None (occurrence: None)
  Receive Date: 20060901
  Receipt Date: 20060901
  Transmission Date: 20061208
  Serious: Yes (Life-Threatening, Hospitalization)
  Sender: FDA-Public Use
  Company Number: None

PATIENT
  Age: 29 Year
  Sex: Female
  Weight: 52.5 kg

DRUGS (1)
  1. METHADONE HCL [Suspect]
     Indication: ARTHRALGIA
     Dosage: 350 MG DAILY PO [YEARS]
     Route: 048

REACTIONS (7)
  - DEPRESSION [None]
  - DIZZINESS [None]
  - LOSS OF CONSCIOUSNESS [None]
  - PALLOR [None]
  - TORSADE DE POINTES [None]
  - VENTRICULAR FIBRILLATION [None]
  - WEIGHT DECREASED [None]
